FAERS Safety Report 6081755-X (Version None)
Quarter: 2009Q1

REPORT INFORMATION
  Report Type: 
  Country: None (occurrence: None)
  Receive Date: 20090218
  Receipt Date: 20090206
  Transmission Date: 20090719
  Serious: Yes (Other)
  Sender: FDA-Public Use
  Company Number: SE-PFIZER INC-2009167850

PATIENT

DRUGS (4)
  1. CHAMPIX [Suspect]
     Dosage: UNK
  2. MESALAZINE [Concomitant]
     Dosage: UNK
  3. IMUREL [Concomitant]
     Dosage: UNK
  4. DIMOR [Concomitant]
     Dosage: UNK

REACTIONS (1)
  - ILEUS [None]
